FAERS Safety Report 23181721 (Version 1)
Quarter: 2023Q4

REPORT INFORMATION
  Report Type: Spontaneous
  Country: US (occurrence: US)
  Receive Date: 20231114
  Receipt Date: 20231114
  Transmission Date: 20240110
  Serious: No
  Sender: FDA-Public Use
  Company Number: US-Nobelpharma America, LLC-NPA-2023-02180

PATIENT
  Sex: Female

DRUGS (1)
  1. HYFTOR [Suspect]
     Active Substance: SIROLIMUS
     Dosage: APPLY TO THE AFFECTED AREA OF FACE TWICE DAILY
     Dates: start: 20231010

REACTIONS (1)
  - Lacrimation increased [Unknown]
